FAERS Safety Report 18026176 (Version 4)
Quarter: 2020Q4

REPORT INFORMATION
  Report Type: Report from Study
  Country: US (occurrence: US)
  Receive Date: 20200715
  Receipt Date: 20201222
  Transmission Date: 20210113
  Serious: Yes (Hospitalization)
  Sender: FDA-Public Use
  Company Number: US-AGIOS-2006US02016

PATIENT

DRUGS (6)
  1. TIBSOVO [Suspect]
     Active Substance: IVOSIDENIB
     Dosage: 250 MILLIGRAM, 2 TABLET (500 MG), QD
     Route: 048
     Dates: start: 20200609
  2. VENCLEXTA [Concomitant]
     Active Substance: VENETOCLAX
     Indication: PRODUCT USED FOR UNKNOWN INDICATION
  3. TIBSOVO [Suspect]
     Active Substance: IVOSIDENIB
     Indication: ACUTE MYELOID LEUKAEMIA
     Dosage: 250 MILLIGRAM, 2 TABLET (500 MG), QD
     Route: 048
     Dates: start: 20200609
  4. LACTAID [Concomitant]
     Active Substance: LACTASE
     Indication: PRODUCT USED FOR UNKNOWN INDICATION
  5. TIBSOVO [Suspect]
     Active Substance: IVOSIDENIB
     Dosage: 250 MILLIGRAM, 2 TABLET (500 MG), QD
     Route: 048
     Dates: start: 20200609
  6. ZOFRAN [Concomitant]
     Active Substance: ONDANSETRON HYDROCHLORIDE
     Indication: PRODUCT USED FOR UNKNOWN INDICATION
     Dosage: IF NEEDED

REACTIONS (9)
  - Lactose intolerance [Unknown]
  - Red blood cell count decreased [Unknown]
  - Weight abnormal [Unknown]
  - Vomiting [Unknown]
  - Abdominal pain upper [Unknown]
  - Back disorder [Unknown]
  - Platelet count decreased [Unknown]
  - Dyspepsia [Unknown]
  - Abdominal discomfort [Unknown]
